FAERS Safety Report 6630164-0 (Version None)
Quarter: 2010Q1

REPORT INFORMATION
  Report Type: 
  Country: None (occurrence: None)
  Receive Date: 20100310
  Receipt Date: 20100310
  Transmission Date: 20100710
  Serious: Yes (Life-Threatening)
  Sender: FDA-Public Use
  Company Number: None

PATIENT
  Sex: Female
  Weight: 74.8 kg

DRUGS (12)
  1. 25% ALBUMIN [Suspect]
     Indication: SUBARACHNOID HAEMORRHAGE
     Dosage: 1.875G/K
     Dates: start: 20100303
  2. 25% ALBUMIN [Suspect]
     Indication: SUBARACHNOID HAEMORRHAGE
     Dosage: 1.875G/K
     Dates: start: 20100304
  3. MANNITOL [Concomitant]
  4. CEFEPIME [Concomitant]
  5. ACETAMINOPHEN [Concomitant]
  6. VANCOMYOCIN [Concomitant]
  7. PREDNISONE [Concomitant]
  8. MIRALAX [Concomitant]
  9. PROTONIX [Concomitant]
  10. NIMODIPINE [Concomitant]
  11. DOCUSATE [Concomitant]
  12. CHLORHEXIDINE GLUCONATE [Concomitant]

REACTIONS (10)
  - BLOOD CULTURE POSITIVE [None]
  - BRAIN NATRIURETIC PEPTIDE INCREASED [None]
  - CARDIAC MURMUR [None]
  - CULTURE URINE POSITIVE [None]
  - HAEMATOCRIT DECREASED [None]
  - HAEMOGLOBIN DECREASED [None]
  - PULMONARY OEDEMA [None]
  - RESPIRATORY DISTRESS [None]
  - RESUSCITATION [None]
  - SPUTUM CULTURE POSITIVE [None]
